FAERS Safety Report 7194077-0 (Version None)
Quarter: 2010Q4

REPORT INFORMATION
  Report Type: 
  Country: None (occurrence: None)
  Receive Date: 20101223
  Receipt Date: 20100929
  Transmission Date: 20110411
  Serious: No
  Sender: FDA-Public Use
  Company Number: US-AMGEN-TCS435730

PATIENT

DRUGS (3)
  1. ENBREL [Suspect]
     Indication: JUVENILE ARTHRITIS
     Dosage: 50 MG, QWK
     Route: 058
     Dates: start: 20100210, end: 20100701
  2. METHOTREXATE [Concomitant]
     Indication: JUVENILE ARTHRITIS
     Dosage: 20 MG, QWK
     Dates: start: 20091008
  3. ADALIMUMAB [Concomitant]
     Dosage: UNK UNK, UNK
     Dates: start: 20100826

REACTIONS (3)
  - ARTHRITIS [None]
  - ASTHENIA [None]
  - CHEST DISCOMFORT [None]
